FAERS Safety Report 18821847 (Version 1)
Quarter: 2021Q1

REPORT INFORMATION
  Report Type: Spontaneous
  Country: GB (occurrence: GB)
  Receive Date: 20210202
  Receipt Date: 20210202
  Transmission Date: 20210419
  Serious: Yes (Other)
  Sender: FDA-Public Use
  Company Number: GB-MYLANLABS-2021M1005828

PATIENT

DRUGS (9)
  1. RAMIPRIL. [Concomitant]
     Active Substance: RAMIPRIL
     Dosage: 1 DOSAGE FORM, QD
     Dates: start: 20201009
  2. GLICLAZIDE [Concomitant]
     Active Substance: GLICLAZIDE
     Dosage: 1 DOSAGE FORM, BID
     Dates: start: 20201009, end: 20201125
  3. TADALAFIL. [Concomitant]
     Active Substance: TADALAFIL
     Dosage: 1 DOSAGE FORM (AT LEAST 30 MINUTES BEFORE SEXU...)
     Dates: start: 20201009
  4. SEMGLEE [Suspect]
     Active Substance: INSULIN GLARGINE
     Indication: PRODUCT USED FOR UNKNOWN INDICATION
     Dosage: TO BE USED AS DIRECTED BY THE SPECIALIST.
     Dates: start: 20201112
  5. LANTUS [Concomitant]
     Active Substance: INSULIN GLARGINE
     Dosage: ((AMBER 2) SEMGLEE FIRST LINE  (INSULIN GLARGINE...)
     Dates: start: 20210118
  6. SITAGLIPTIN [Concomitant]
     Active Substance: SITAGLIPTIN
     Dosage: 1 DOSAGE FORM, QD
     Dates: start: 20201007, end: 20201202
  7. METFORMIN [Concomitant]
     Active Substance: METFORMIN HYDROCHLORIDE
     Dosage: 2 DOSAGE FORM, BID (WITH FOOD)
     Dates: start: 20201009, end: 20201030
  8. OMEPRAZOLE. [Concomitant]
     Active Substance: OMEPRAZOLE
     Dosage: 1 DOSAGE FORM, QD (AS DIRECTED FOR INDIGEST...)
     Dates: start: 20201009
  9. SIMVASTATIN. [Concomitant]
     Active Substance: SIMVASTATIN
     Dosage: 1 DOSAGE FORM, QD (AT NIGHT)
     Dates: start: 20201009

REACTIONS (2)
  - Product substitution issue [Unknown]
  - Hypoglycaemia unawareness [Recovering/Resolving]

NARRATIVE: CASE EVENT DATE: 20210125
